FAERS Safety Report 4370071-X (Version None)
Quarter: 2004Q2

REPORT INFORMATION
  Report Type: 
  Country: None (occurrence: None)
  Receive Date: 20040527
  Receipt Date: 20040512
  Transmission Date: 20050107
  Serious: Yes (Death, Life-Threatening)
  Sender: FDA-Public Use
  Company Number: 04SPA0057

PATIENT
  Age: 65 Year
  Sex: Male

DRUGS (4)
  1. AGGRASTAT [Suspect]
     Indication: ANGINA UNSTABLE
     Dates: start: 20040505, end: 20040505
  2. CLOPIDOGREL BISULFATE (CLOPIDOGREL) [Concomitant]
  3. DOBUTAMINE HCL [Concomitant]
  4. ENOXAPARIN SODIUM [Concomitant]

REACTIONS (2)
  - ANGINA PECTORIS [None]
  - THROMBOCYTOPENIA [None]
